FAERS Safety Report 7864067-0 (Version None)
Quarter: 2011Q4

REPORT INFORMATION
  Report Type: 
  Country: None (occurrence: None)
  Receive Date: 20111028
  Receipt Date: 20111019
  Transmission Date: 20120403
  Serious: Yes (Other)
  Sender: FDA-Public Use
  Company Number: JP-JNJFOC-20111009380

PATIENT
  Age: 34 Year
  Sex: Male

DRUGS (3)
  1. REMICADE [Suspect]
     Indication: CROHN'S DISEASE
     Dosage: 3 INFUSIONS AT 0,2 AND 6 WEEKS.
     Route: 042
  2. REMICADE [Suspect]
     Route: 042
  3. UNKNOWN ADRENAL HORMONE PREPARATIONS [Concomitant]
     Indication: CROHN'S DISEASE
     Route: 065

REACTIONS (1)
  - INTESTINAL STENOSIS [None]
